FAERS Safety Report 4833722-9 (Version None)
Quarter: 2005Q4

REPORT INFORMATION
  Report Type: 
  Country: None (occurrence: None)
  Receive Date: 20051114
  Receipt Date: 20051103
  Transmission Date: 20060501
  Serious: Yes (Hospitalization)
  Sender: FDA-Public Use
  Company Number: TPA2005A01120

PATIENT
  Age: 65 Year
  Sex: Female
  Weight: 77.1115 kg

DRUGS (15)
  1. ACTOS [Suspect]
     Indication: DIABETES MELLITUS NON-INSULIN-DEPENDENT
     Dosage: SEE IMAGE
     Route: 048
     Dates: start: 20050601, end: 20050601
  2. ACTOS [Suspect]
     Indication: DIABETES MELLITUS NON-INSULIN-DEPENDENT
     Dosage: SEE IMAGE
     Route: 048
     Dates: start: 20050731, end: 20050901
  3. VANCOMYCIN [Suspect]
     Indication: DIABETES MELLITUS NON-INSULIN-DEPENDENT
     Dosage: INTRAVENOUS
     Route: 042
  4. GLUCOPHAGE [Concomitant]
  5. TOPROL-XL [Suspect]
  6. LIPITOR [Concomitant]
  7. COUMADIN [Concomitant]
  8. TIAZAC [Concomitant]
  9. NIASPAN [Concomitant]
  10. PREMARIN [Concomitant]
  11. OXYCODONE (OXYCODONE) [Concomitant]
  12. MORPHINE [Concomitant]
  13. NEXIUM [Concomitant]
  14. ATROVENT [Concomitant]
  15. XANAX [Concomitant]

REACTIONS (8)
  - BLOOD GLUCOSE INCREASED [None]
  - JOINT SWELLING [None]
  - KNEE ARTHROPLASTY [None]
  - MALAISE [None]
  - OEDEMA PERIPHERAL [None]
  - POSTOPERATIVE WOUND INFECTION [None]
  - RENAL DISORDER [None]
  - WEIGHT DECREASED [None]
